FAERS Safety Report 20554519 (Version 1)
Quarter: 2022Q1

REPORT INFORMATION
  Report Type: Spontaneous
  Country: IN (occurrence: IN)
  Receive Date: 20220304
  Receipt Date: 20220304
  Transmission Date: 20220423
  Serious: Yes (Other)
  Sender: FDA-Public Use
  Company Number: IN-NOVARTISPH-NVSC2022IN043111

PATIENT
  Age: 57 Year
  Sex: Female
  Weight: 82.3 kg

DRUGS (3)
  1. ZOLEDRONIC ACID [Suspect]
     Active Substance: ZOLEDRONIC ACID
     Indication: Product used for unknown indication
     Dosage: 4 DOSAGE FORM
     Route: 065
     Dates: start: 20211028
  2. DEXAMETHASONE [Concomitant]
     Active Substance: DEXAMETHASONE
     Indication: Product used for unknown indication
     Dosage: REDUING DOSE
     Route: 065
  3. PALBOCICLIB [Concomitant]
     Active Substance: PALBOCICLIB
     Indication: Product used for unknown indication
     Dosage: UNK
     Route: 065

REACTIONS (12)
  - Metastases to lung [Unknown]
  - Metastases to lymph nodes [Unknown]
  - Lymphadenopathy [Unknown]
  - Metastases to spine [Unknown]
  - Asthenia [Unknown]
  - COVID-19 [Recovered/Resolved]
  - Cough [Unknown]
  - Nasal congestion [Unknown]
  - Constipation [Unknown]
  - Insomnia [Unknown]
  - Affective disorder [Unknown]
  - Pain [Unknown]

NARRATIVE: CASE EVENT DATE: 20211129
